FAERS Safety Report 5394305-8 (Version None)
Quarter: 2007Q3

REPORT INFORMATION
  Report Type: 
  Country: None (occurrence: None)
  Receive Date: 20070723
  Receipt Date: 20070523
  Transmission Date: 20080115
  Serious: No
  Sender: FDA-Public Use
  Company Number: A0652648A

PATIENT
  Age: 58 Year
  Sex: Male

DRUGS (4)
  1. AVANDIA [Suspect]
     Dosage: 4MG PER DAY
     Route: 048
  2. METFORMIN HCL [Concomitant]
  3. GLYBURIDE [Concomitant]
  4. LISINOPRIL [Concomitant]

REACTIONS (1)
  - WEIGHT INCREASED [None]
